FAERS Safety Report 7933585-9 (Version None)
Quarter: 2011Q4

REPORT INFORMATION
  Report Type: 
  Country: None (occurrence: None)
  Receive Date: 20111122
  Receipt Date: 20111116
  Transmission Date: 20120403
  Serious: Yes (Death, Other)
  Sender: FDA-Public Use
  Company Number: US-ELI_LILLY_AND_COMPANY-US201110002601

PATIENT
  Sex: Female

DRUGS (15)
  1. FENTANYL-100 [Concomitant]
     Dosage: 100 UG, UNK
  2. GEMZAR [Suspect]
     Indication: VAGINAL CANCER
     Dosage: UNK
     Route: 042
     Dates: start: 20100826, end: 20101021
  3. NAVALBINE [Concomitant]
     Indication: VAGINAL CANCER
     Dosage: UNK
     Dates: start: 20100826, end: 20101021
  4. DYAZIDE [Concomitant]
     Dosage: UNK
  5. LORTAB [Concomitant]
     Indication: PAIN
     Dosage: UNK
  6. FLEXERIL [Concomitant]
     Dosage: 10 MG, BID
  7. MAXALT                             /01406501/ [Concomitant]
     Indication: MIGRAINE
     Dosage: 10 MG, PRN
  8. MIRALAX [Concomitant]
  9. PHENERGAN [Concomitant]
     Dosage: UNK
  10. BENADRYL [Concomitant]
     Indication: PRURITUS
     Dosage: UNK
  11. FENTANYL-100 [Concomitant]
     Indication: PAIN
     Dosage: 75 UG, UNK
  12. LOTREL [Concomitant]
     Dosage: UNK
  13. LEXAPRO [Concomitant]
     Dosage: 10 MG, QD
  14. ATIVAN [Concomitant]
     Indication: ANXIETY
     Dosage: UNK
  15. PROCTOFOAM [Concomitant]
     Dosage: UNK

REACTIONS (5)
  - NEOPLASM MALIGNANT [None]
  - WOUND COMPLICATION [None]
  - DEBRIDEMENT [None]
  - VULVOVAGINAL PAIN [None]
  - VAGINAL HAEMORRHAGE [None]
